FAERS Safety Report 4395523-8 (Version None)
Quarter: 2004Q3

REPORT INFORMATION
  Report Type: 
  Country: None (occurrence: None)
  Receive Date: 20040712
  Receipt Date: 20040712
  Transmission Date: 20050211
  Serious: No
  Sender: FDA-Public Use
  Company Number: None

PATIENT
  Sex: Male
  Weight: 78.1 kg

DRUGS (13)
  1. TEMOZOLOMIDE [Suspect]
  2. CPT-11 [Suspect]
  3. DILANTIN [Concomitant]
  4. KEPPRA [Concomitant]
  5. LOVENOX [Concomitant]
  6. PROVIGIL [Concomitant]
  7. TOPROL-XL [Concomitant]
  8. ZANTAC [Concomitant]
  9. ATIVAN [Concomitant]
  10. BACTRIM [Concomitant]
  11. CELEXA [Concomitant]
  12. DECADRON [Concomitant]
  13. DIGITEK [Concomitant]

REACTIONS (8)
  - BRAIN OEDEMA [None]
  - CEREBRAL HAEMORRHAGE [None]
  - DECREASED APPETITE [None]
  - DISEASE PROGRESSION [None]
  - MENTAL STATUS CHANGES [None]
  - NEUROLOGICAL SYMPTOM [None]
  - SOMNOLENCE [None]
  - URINARY HESITATION [None]
